FAERS Safety Report 9857905 (Version 2)
Quarter: 2014Q1

REPORT INFORMATION
  Report Type: Spontaneous
  Country: DE (occurrence: DE)
  Receive Date: 20140131
  Receipt Date: 20140305
  Transmission Date: 20141002
  Serious: Yes (Other)
  Sender: FDA-Public Use
  Company Number: DE-JNJFOC-20140115572

PATIENT
  Sex: 0

DRUGS (1)
  1. DOLORMIN MIGRANE ZAPFCHEN [Suspect]
     Indication: PRODUCT USED FOR UNKNOWN INDICATION
     Route: 054

REACTIONS (4)
  - Anal fissure [Unknown]
  - Diarrhoea [Unknown]
  - Application site pain [Unknown]
  - Defaecation urgency [Unknown]
